FAERS Safety Report 8028270-1 (Version None)
Quarter: 2012Q1

REPORT INFORMATION
  Report Type: 
  Country: None (occurrence: None)
  Receive Date: 20120106
  Receipt Date: 20120103
  Transmission Date: 20120608
  Serious: Yes (Death, Other)
  Sender: FDA-Public Use
  Company Number: IT-BRISTOL-MYERS SQUIBB COMPANY-16264145

PATIENT
  Age: 88 Year
  Sex: Male

DRUGS (3)
  1. COUMADIN [Suspect]
     Indication: ATRIAL FIBRILLATION
     Dosage: 1 DF = 1 UNITS:INTERRUPTED ON 21SEP2011
     Route: 048
     Dates: start: 20090101
  2. SOTALOL HCL [Suspect]
     Indication: ATRIAL FIBRILLATION
  3. ENALAPRIL MALEATE [Suspect]
     Indication: HYPERTENSION
     Route: 048

REACTIONS (3)
  - BRAIN MIDLINE SHIFT [None]
  - CEREBRAL HAEMORRHAGE [None]
  - URINARY TRACT INFECTION [None]
